FAERS Safety Report 7628670-5 (Version None)
Quarter: 2011Q3

REPORT INFORMATION
  Report Type: 
  Country: None (occurrence: None)
  Receive Date: 20110721
  Receipt Date: 20110721
  Transmission Date: 20111222
  Serious: Yes (Hospitalization)
  Sender: FDA-Public Use
  Company Number: None

PATIENT
  Age: 64 Year
  Sex: Male
  Weight: 79.7 kg

DRUGS (1)
  1. NAPROXEN [Suspect]
     Indication: PAIN
     Dosage: 1 TAB TID PO
     Route: 048
     Dates: start: 20110225, end: 20110411

REACTIONS (3)
  - OESOPHAGITIS [None]
  - GASTRIC ULCER HAEMORRHAGE [None]
  - OESOPHAGEAL ULCER [None]
